FAERS Safety Report 7307811-3 (Version None)
Quarter: 2011Q1

REPORT INFORMATION
  Report Type: 
  Country: None (occurrence: None)
  Receive Date: 20110223
  Receipt Date: 20110221
  Transmission Date: 20110831
  Serious: Yes (Other)
  Sender: FDA-Public Use
  Company Number: US-PFIZER INC-2011037979

PATIENT
  Sex: Female
  Weight: 60.317 kg

DRUGS (2)
  1. LIPITOR [Suspect]
     Indication: BLOOD CHOLESTEROL INCREASED
     Dosage: 10 MG, DAILY
     Route: 048
     Dates: start: 20000101, end: 20070201
  2. CRESTOR [Suspect]
     Dosage: UNK
     Dates: start: 20091201, end: 20091201

REACTIONS (11)
  - STENT PLACEMENT [None]
  - ABDOMINAL DISCOMFORT [None]
  - ANGIOPLASTY [None]
  - PAIN [None]
  - HEPATIC PAIN [None]
  - PHARYNGEAL DISORDER [None]
  - SEASONAL ALLERGY [None]
  - DRUG HYPERSENSITIVITY [None]
  - LIVER INJURY [None]
  - HEPATIC ENZYME INCREASED [None]
  - BLOOD CHOLESTEROL INCREASED [None]
